FAERS Safety Report 5459986-9 (Version None)
Quarter: 2007Q3

REPORT INFORMATION
  Report Type: 
  Country: None (occurrence: None)
  Receive Date: 20070919
  Receipt Date: 20070502
  Transmission Date: 20080115
  Serious: Yes (Other)
  Sender: FDA-Public Use
  Company Number: US-ASTRAZENECA-2007UW09713

PATIENT
  Age: 43 Year
  Sex: Female

DRUGS (3)
  1. SEROQUEL [Suspect]
     Indication: BIPOLAR DISORDER
     Dosage: 50-500 MG
     Route: 048
     Dates: start: 20050401, end: 20070101
  2. SEROQUEL [Suspect]
     Indication: DEPRESSION
     Dosage: 50-500 MG
     Route: 048
     Dates: start: 20050401, end: 20070101
  3. RISPERDAL [Suspect]

REACTIONS (1)
  - PANCREATITIS ACUTE [None]
